FAERS Safety Report 10813539 (Version 1)
Quarter: 2015Q1

REPORT INFORMATION
  Report Type: Spontaneous
  Country: US (occurrence: US)
  Receive Date: 20150218
  Receipt Date: 20150218
  Transmission Date: 20150721
  Serious: No
  Sender: FDA-Public Use
  Company Number: US-PFIZER INC-2015057458

PATIENT
  Age: 15 Year
  Sex: Female

DRUGS (3)
  1. DOXEPIN HCL [Suspect]
     Active Substance: DOXEPIN HYDROCHLORIDE
     Indication: URTICARIA CHRONIC
     Dosage: 2 DF, 1X/DAY (IN THE EVENING)
     Dates: start: 201411
  2. XYZAL [Suspect]
     Active Substance: LEVOCETIRIZINE DIHYDROCHLORIDE
     Indication: URTICARIA CHRONIC
     Dosage: 2 DF, 1X/DAY (IN THE MORNING)
  3. DOXEPIN HCL [Suspect]
     Active Substance: DOXEPIN HYDROCHLORIDE
     Dosage: 3 DF, 1X/DAY (IN THE EVENING)

REACTIONS (3)
  - Product use issue [Unknown]
  - Abdominal pain upper [Unknown]
  - Drug effect decreased [Unknown]
